FAERS Safety Report 18017234 (Version 1)
Quarter: 2020Q3

REPORT INFORMATION
  Report Type: Spontaneous
  Country: CA (occurrence: CA)
  Receive Date: 20200713
  Receipt Date: 20200713
  Transmission Date: 20201103
  Serious: Yes (Hospitalization, Other)
  Sender: FDA-Public Use
  Company Number: NVSC2020CA195270

PATIENT
  Age: 55 Year
  Sex: Female

DRUGS (7)
  1. TEGRETOL [Suspect]
     Active Substance: CARBAMAZEPINE
     Indication: PRODUCT USED FOR UNKNOWN INDICATION
     Dosage: UNK
     Route: 065
  2. FYCOMPA [Suspect]
     Active Substance: PERAMPANEL
     Indication: SIMPLE PARTIAL SEIZURES
     Dosage: 2.0 MG, QD
     Route: 048
  3. BUPROPION. [Concomitant]
     Active Substance: BUPROPION
     Indication: PRODUCT USED FOR UNKNOWN INDICATION
     Dosage: UNK
     Route: 065
  4. LAMICTAL [Concomitant]
     Active Substance: LAMOTRIGINE
     Indication: PRODUCT USED FOR UNKNOWN INDICATION
     Dosage: UNK
     Route: 065
  5. FYCOMPA [Suspect]
     Active Substance: PERAMPANEL
     Indication: FOCAL DYSCOGNITIVE SEIZURES
     Dosage: 4.0 MG, QD
     Route: 048
  6. FYCOMPA [Suspect]
     Active Substance: PERAMPANEL
     Dosage: 2.0 MG, QD
     Route: 048
  7. CLOBAZAM. [Concomitant]
     Active Substance: CLOBAZAM
     Indication: PRODUCT USED FOR UNKNOWN INDICATION
     Dosage: UNK
     Route: 065

REACTIONS (7)
  - Oedema peripheral [Not Recovered/Not Resolved]
  - Central nervous system lesion [Not Recovered/Not Resolved]
  - Hypoaesthesia [Not Recovered/Not Resolved]
  - Gait disturbance [Not Recovered/Not Resolved]
  - Pain in extremity [Not Recovered/Not Resolved]
  - Vocal cord thickening [Not Recovered/Not Resolved]
  - Dizziness [Not Recovered/Not Resolved]
